FAERS Safety Report 7419036-1 (Version None)
Quarter: 2011Q2

REPORT INFORMATION
  Report Type: 
  Country: None (occurrence: None)
  Receive Date: 20110406
  Receipt Date: 20110324
  Transmission Date: 20111010
  Serious: Yes (Other)
  Sender: FDA-Public Use
  Company Number: 029973

PATIENT
  Sex: Male

DRUGS (5)
  1. ALLOPURINOL [Concomitant]
  2. METOPROLOL [Concomitant]
  3. THYROXINE [Concomitant]
  4. KEPPRA [Suspect]
     Dosage: (1000 MG)
     Dates: start: 20100101
  5. LASIX [Concomitant]

REACTIONS (3)
  - HEPATITIS [None]
  - JAUNDICE CHOLESTATIC [None]
  - CHOLESTASIS [None]
